FAERS Safety Report 20764529 (Version 1)
Quarter: 2022Q2

REPORT INFORMATION
  Report Type: Spontaneous
  Country: FR (occurrence: FR)
  Receive Date: 20220428
  Receipt Date: 20220428
  Transmission Date: 20220720
  Serious: Yes (Other)
  Sender: FDA-Public Use
  Company Number: FR-SA-SAC20220328000413

PATIENT
  Age: 23 Year
  Sex: Male
  Weight: 69 kg

DRUGS (11)
  1. PREDNISONE [Suspect]
     Active Substance: PREDNISONE
     Indication: Hodgkin^s disease nodular sclerosis stage II
     Dosage: 80 MILLIGRAM, QD,80 MG, QD
     Route: 048
     Dates: start: 20220121, end: 202202
  2. VALACYCLOVIR HYDROCHLORIDE [Suspect]
     Active Substance: VALACYCLOVIR HYDROCHLORIDE
     Indication: Antiviral prophylaxis
     Dosage: 500 MILLIGRAM, QD(500 MG, QD)
     Route: 048
     Dates: start: 20220121
  3. DOXORUBICIN HYDROCHLORIDE [Suspect]
     Active Substance: DOXORUBICIN HYDROCHLORIDE
     Indication: Hodgkin^s disease nodular sclerosis stage II
     Dosage: 68 MILLIGRAM,68 MG, Q15D
     Route: 042
     Dates: start: 20220121
  4. BACTRIM [Suspect]
     Active Substance: SULFAMETHOXAZOLE\TRIMETHOPRIM
     Indication: Antibiotic prophylaxis
     Dosage: 800 MILLIGRAM, Q3D,800 MG, Q3D
     Route: 048
     Dates: start: 20220121, end: 20220128
  5. BLEOMYCIN SULFATE [Suspect]
     Active Substance: BLEOMYCIN SULFATE
     Indication: Hodgkin^s disease nodular sclerosis stage II
     Dosage: 15 MILLIGRAM,15 MG, Q15D
     Route: 042
     Dates: start: 20220128, end: 202202
  6. DACARBAZINE [Suspect]
     Active Substance: DACARBAZINE
     Indication: Hodgkin^s disease nodular sclerosis stage II
     Dosage: 960 MILLIGRAM,960 MG, Q15D
     Route: 042
     Dates: start: 20220121
  7. CYCLOPHOSPHAMIDE [Suspect]
     Active Substance: CYCLOPHOSPHAMIDE
     Indication: Hodgkin^s disease nodular sclerosis stage II
     Dosage: 2300 MILLIGRAM,2300 MG, Q15D
     Route: 042
     Dates: start: 20220121, end: 202202
  8. ETOPOPHOS [Suspect]
     Active Substance: ETOPOSIDE PHOSPHATE
     Indication: Hodgkin^s disease nodular sclerosis stage II
     Dosage: 760 MILLIGRAM,760 MG, Q15D
     Route: 042
     Dates: start: 20220121, end: 202202
  9. VINCRISTINE SULFATE [Suspect]
     Active Substance: VINCRISTINE SULFATE
     Indication: Hodgkin^s disease nodular sclerosis stage II
     Dosage: 2 MILLIGRAM,2 MG, Q15D
     Route: 042
     Dates: start: 20220128, end: 202202
  10. DOXORUBICIN HYDROCHLORIDE [Suspect]
     Active Substance: DOXORUBICIN HYDROCHLORIDE
     Indication: Hodgkin^s disease nodular sclerosis stage II
     Dosage: 68 MILLIGRAM,68 MG, Q15D
     Route: 042
     Dates: start: 20220121
  11. SULFAMETHOXAZOLE\TRIMETHOPRIM [Suspect]
     Active Substance: SULFAMETHOXAZOLE\TRIMETHOPRIM
     Indication: Antibiotic prophylaxis
     Dosage: 800 MILLIGRAM, Q3D,800 MG
     Route: 048
     Dates: start: 20220121, end: 20220128

REACTIONS (1)
  - Mixed liver injury [Recovered/Resolved]

NARRATIVE: CASE EVENT DATE: 20220128
